FAERS Safety Report 10958197 (Version 1)
Quarter: 2015Q1

REPORT INFORMATION
  Report Type: Spontaneous
  Country: DE (occurrence: DE)
  Receive Date: 20150326
  Receipt Date: 20150326
  Transmission Date: 20150721
  Serious: Yes (Hospitalization)
  Sender: FDA-Public Use
  Company Number: GXKR2015DE001713

PATIENT

DRUGS (2)
  1. GLIMEPIRIDE. [Suspect]
     Active Substance: GLIMEPIRIDE
     Indication: ACCIDENTAL EXPOSURE TO PRODUCT
     Dosage: 1 TABLET OR MORE
     Route: 048
     Dates: start: 20141209
  2. METFORMIN [Suspect]
     Active Substance: METFORMIN HYDROCHLORIDE
     Indication: ACCIDENTAL EXPOSURE TO PRODUCT
     Route: 048
     Dates: start: 20141209

REACTIONS (4)
  - Hypoglycaemia [Recovered/Resolved]
  - Accidental exposure to product by child [Recovered/Resolved]
  - Blood lactic acid increased [Recovered/Resolved]
  - Acidosis [Recovered/Resolved]

NARRATIVE: CASE EVENT DATE: 20141209
